FAERS Safety Report 14378477 (Version 1)
Quarter: 2018Q1

REPORT INFORMATION
  Report Type: Spontaneous
  Country: FR (occurrence: FR)
  Receive Date: 20180112
  Receipt Date: 20180112
  Transmission Date: 20180509
  Serious: Yes (Other)
  Sender: FDA-Public Use
  Company Number: FR-MERCK KGAA-2039974

PATIENT
  Age: 65 Year
  Sex: Female

DRUGS (8)
  1. CANDESARTAN CILEXETIL. [Suspect]
     Active Substance: CANDESARTAN CILEXETIL
     Route: 048
     Dates: start: 2014, end: 20171109
  2. VOLTARENE (DICLOFENAC SODIUM) [Suspect]
     Active Substance: DICLOFENAC SODIUM
     Route: 003
  3. NOVOTHYROX [Suspect]
     Active Substance: LEVOTHYROXINE SODIUM
     Indication: HYPOTHYROIDISM
     Route: 048
  4. ZOPICLONE [Suspect]
     Active Substance: ZOPICLONE
     Route: 048
  5. ALLOPURINOL. [Suspect]
     Active Substance: ALLOPURINOL
     Route: 048
  6. ARANESP [Suspect]
     Active Substance: DARBEPOETIN ALFA
     Route: 058
  7. BISOCE [Suspect]
     Active Substance: BISOPROLOL
     Route: 048
     Dates: start: 20170808, end: 20171130
  8. FUROSEMIDE. [Suspect]
     Active Substance: FUROSEMIDE

REACTIONS (2)
  - Colitis [Not Recovered/Not Resolved]
  - Diarrhoea [Not Recovered/Not Resolved]

NARRATIVE: CASE EVENT DATE: 201710
